FAERS Safety Report 23173511 (Version 11)
Quarter: 2025Q3

REPORT INFORMATION
  Report Type: Spontaneous
  Country: EU (occurrence: EU)
  Receive Date: 20231111
  Receipt Date: 20250919
  Transmission Date: 20251021
  Serious: Yes (Life-Threatening, Hospitalization, Disabling, Other)
  Sender: TAKEDA
  Company Number: None

PATIENT
  Age: 10 Year
  Sex: Female
  Weight: 56 kg

DRUGS (6)
  1. LISDEXAMFETAMINE DIMESYLATE [Suspect]
     Active Substance: LISDEXAMFETAMINE DIMESYLATE
     Indication: Product used for unknown indication
  2. METHYLPHENIDATE HYDROCHLORIDE [Suspect]
     Active Substance: METHYLPHENIDATE HYDROCHLORIDE
     Indication: Product used for unknown indication
  3. METHYLPHENIDATE HYDROCHLORIDE [Suspect]
     Active Substance: METHYLPHENIDATE HYDROCHLORIDE
     Indication: Product used for unknown indication
  4. GARDASIL 9 [Suspect]
     Active Substance: HUMAN PAPILLOMAVIRUS TYPE 11 L1 CAPSID PROTEIN ANTIGEN\HUMAN PAPILLOMAVIRUS TYPE 16 L1 CAPSID PROTEI
     Indication: Immunisation
  5. RISPERIDONE [Suspect]
     Active Substance: RISPERIDONE
     Indication: Product used for unknown indication
  6. GARDASIL [Suspect]
     Active Substance: HUMAN PAPILLOMAVIRUS QUADRIVALENT (TYPES 6, 11, 16, AND 18) VACCINE, RECOMBINANT
     Indication: Prophylaxis

REACTIONS (39)
  - Organic brain syndrome [Recovered/Resolved with Sequelae]
  - Encephalitis autoimmune [Recovered/Resolved with Sequelae]
  - Intellectual disability [Recovered/Resolved with Sequelae]
  - Pica [Not Recovered/Not Resolved]
  - Neurodegenerative disorder [Unknown]
  - Gastritis erosive [Unknown]
  - Cerebral atrophy [Unknown]
  - Leukopenia [Unknown]
  - Autism spectrum disorder [Unknown]
  - Foreign body in eye [Unknown]
  - Syncope [Unknown]
  - Vitamin B12 deficiency [Unknown]
  - Orthodontic procedure [Unknown]
  - Angiopathy [Unknown]
  - Amenorrhoea [Unknown]
  - Sensitisation [Unknown]
  - Hyperphagia [Unknown]
  - Weight increased [Unknown]
  - Alanine aminotransferase increased [Unknown]
  - Metabolic disorder [Unknown]
  - Epstein-Barr virus infection [Unknown]
  - Anti-transglutaminase antibody increased [Unknown]
  - Neutrophilia [Unknown]
  - Vitamin D decreased [Unknown]
  - Culture urine positive [Unknown]
  - Urinary incontinence [Unknown]
  - Depression [Unknown]
  - Glucose tolerance impaired [Unknown]
  - Blood glucose abnormal [Unknown]
  - Adverse drug reaction [Unknown]
  - Bacterial disease carrier [Unknown]
  - Obsessive-compulsive disorder [Unknown]
  - Thyroxine free decreased [Unknown]
  - Serum ferritin decreased [Unknown]
  - Dermatitis [Unknown]
  - Mite allergy [Unknown]
  - Knee deformity [Unknown]
  - Rebound effect [Unknown]
  - Seasonal allergy [Unknown]

NARRATIVE: CASE EVENT DATE: 20190108
